FAERS Safety Report 12808285 (Version 1)
Quarter: 2016Q4

REPORT INFORMATION
  Report Type: Spontaneous
  Country: US (occurrence: US)
  Receive Date: 20161004
  Receipt Date: 20161004
  Transmission Date: 20170207
  Serious: No
  Sender: FDA-Public Use
  Company Number: US-TEVA-698183USA

PATIENT
  Age: 54 Year
  Sex: Female

DRUGS (19)
  1. PROGESTERONE. [Concomitant]
     Active Substance: PROGESTERONE
  2. ARMOUR THYROID [Concomitant]
     Active Substance: THYROID, PORCINE
  3. BACLOFEN. [Concomitant]
     Active Substance: BACLOFEN
  4. COPAXONE [Suspect]
     Active Substance: GLATIRAMER ACETATE
     Indication: MULTIPLE SCLEROSIS
     Route: 058
     Dates: start: 20070227
  5. CLONAZEPAM. [Concomitant]
     Active Substance: CLONAZEPAM
  6. AMANTADINE [Concomitant]
     Active Substance: AMANTADINE
  7. CYMBALTA [Concomitant]
     Active Substance: DULOXETINE HYDROCHLORIDE
  8. VIVELLE-DOT [Concomitant]
     Active Substance: ESTRADIOL
  9. KEPPRA [Concomitant]
     Active Substance: LEVETIRACETAM
  10. BUDEPRION XL [Concomitant]
     Active Substance: BUPROPION HYDROCHLORIDE
  11. ALENDRONATE [Concomitant]
     Active Substance: ALENDRONATE SODIUM
  12. LEVETIRACETAM. [Concomitant]
     Active Substance: LEVETIRACETAM
  13. CLONAZEPAM. [Concomitant]
     Active Substance: CLONAZEPAM
  14. PROVIGIL [Concomitant]
     Active Substance: MODAFINIL
  15. TOPIRAMATE. [Concomitant]
     Active Substance: TOPIRAMATE
  16. KLONOPIN [Concomitant]
     Active Substance: CLONAZEPAM
  17. ACYCLOVIR. [Concomitant]
     Active Substance: ACYCLOVIR
  18. TOPAMAX [Concomitant]
     Active Substance: TOPIRAMATE
  19. CITALOPRAM [Concomitant]
     Active Substance: CITALOPRAM HYDROBROMIDE

REACTIONS (3)
  - Fatigue [Recovered/Resolved]
  - Vertigo [Recovering/Resolving]
  - Depressed mood [Recovered/Resolved]

NARRATIVE: CASE EVENT DATE: 201608
